FAERS Safety Report 8091948-8 (Version None)
Quarter: 2012Q1

REPORT INFORMATION
  Report Type: 
  Country: None (occurrence: None)
  Receive Date: 20120131
  Receipt Date: 20120130
  Transmission Date: 20120608
  Serious: Yes (Death)
  Sender: FDA-Public Use
  Company Number: JP-B.I. PHARMACEUTICALS,INC./RIDGEFIELD-2012-BP-01816NB

PATIENT
  Age: 79 Year
  Sex: Male

DRUGS (3)
  1. ASPIRIN [Suspect]
     Route: 048
     Dates: start: 20110101
  2. PRADAXA [Suspect]
     Indication: ATRIAL FIBRILLATION
     Dosage: 220 MG
     Route: 048
     Dates: start: 20110322, end: 20120115
  3. PLAVIX [Suspect]
     Route: 048
     Dates: start: 20110101

REACTIONS (1)
  - SUBDURAL HAEMORRHAGE [None]
